FAERS Safety Report 10560016 (Version 2)
Quarter: 2014Q4

REPORT INFORMATION
  Report Type: Report from Study
  Country: GB (occurrence: GB)
  Receive Date: 20141103
  Receipt Date: 20141105
  Transmission Date: 20150529
  Serious: Yes (Hospitalization)
  Sender: FDA-Public Use
  Company Number: GB-MYLANLABS-2014M1008946

PATIENT

DRUGS (5)
  1. FLUOXETINE [Concomitant]
     Active Substance: FLUOXETINE\FLUOXETINE HYDROCHLORIDE
     Indication: PRODUCT USED FOR UNKNOWN INDICATION
     Dosage: UNK
     Route: 065
     Dates: start: 2004
  2. PACLITAXEL. [Suspect]
     Active Substance: PACLITAXEL
     Indication: MALIGNANT MELANOMA
     Dosage: 129 MG, QW
     Route: 042
     Dates: start: 20140521, end: 20141015
  3. PAZOPANIB [Suspect]
     Active Substance: PAZOPANIB
     Indication: MALIGNANT MELANOMA
     Dosage: 800 MG, QD
     Route: 048
     Dates: start: 20140521, end: 20140613
  4. PARACETAMOL [Concomitant]
     Active Substance: ACETAMINOPHEN
     Indication: PRODUCT USED FOR UNKNOWN INDICATION
     Dosage: UNK
     Route: 065
     Dates: start: 20140613
  5. OMEPRAZOLE. [Concomitant]
     Active Substance: OMEPRAZOLE
     Indication: PRODUCT USED FOR UNKNOWN INDICATION
     Dosage: UNK
     Route: 065
     Dates: start: 20140408

REACTIONS (6)
  - Insomnia [Unknown]
  - Lethargy [Unknown]
  - Pyrexia [Unknown]
  - Abdominal pain [Not Recovered/Not Resolved]
  - Hyperhidrosis [Unknown]
  - Liver function test abnormal [Unknown]

NARRATIVE: CASE EVENT DATE: 20140610
